FAERS Safety Report 15447953 (Version 1)
Quarter: 2018Q3

REPORT INFORMATION
  Report Type: Spontaneous
  Country: US (occurrence: US)
  Receive Date: 20180928
  Receipt Date: 20180928
  Transmission Date: 20181010
  Serious: No
  Sender: FDA-Public Use
  Company Number: US-BIOMARINAP-US-2018-119913

PATIENT
  Age: 15 Year

DRUGS (1)
  1. NAGLAZYME [Suspect]
     Active Substance: GALSULFASE
     Indication: PRODUCT USED FOR UNKNOWN INDICATION
     Route: 042

REACTIONS (3)
  - Vessel puncture site pain [Recovering/Resolving]
  - Vessel puncture site pruritus [Recovering/Resolving]
  - Vessel puncture site erythema [Recovering/Resolving]

NARRATIVE: CASE EVENT DATE: 20180916
